FAERS Safety Report 15451356 (Version 7)
Quarter: 2019Q1

REPORT INFORMATION
  Report Type: Report from Study
  Country: US (occurrence: US)
  Receive Date: 20181001
  Receipt Date: 20190204
  Transmission Date: 20190417
  Serious: Yes (Hospitalization, Other)
  Sender: FDA-Public Use
  Company Number: US-GILEAD-2018-0365676

PATIENT
  Age: 61 Year
  Sex: Male

DRUGS (9)
  1. TYVASO [Suspect]
     Active Substance: TREPROSTINIL
     Dosage: 12 UG, QID
     Route: 065
     Dates: start: 20181222, end: 201901
  2. AMBRISENTAN [Suspect]
     Active Substance: AMBRISENTAN
     Indication: PULMONARY HYPERTENSION
     Dosage: 10 MG, QD
     Route: 065
     Dates: start: 20161027, end: 201901
  3. TYVASO [Suspect]
     Active Substance: TREPROSTINIL
     Dosage: 4 BREATHS QID
     Dates: start: 20190109, end: 20190109
  4. TYVASO [Suspect]
     Active Substance: TREPROSTINIL
     Dosage: 3 BREATHS/QID
     Dates: start: 20190109
  5. TYVASO [Suspect]
     Active Substance: TREPROSTINIL
     Dosage: 18 PG, QID
     Route: 065
  6. TYVASO [Suspect]
     Active Substance: TREPROSTINIL
     Indication: PRODUCT USED FOR UNKNOWN INDICATION
     Dosage: 6 BREATHS
  7. TYVASO [Suspect]
     Active Substance: TREPROSTINIL
     Dosage: 2 BREATH, QID
     Dates: start: 20190111
  8. REMODULIN [Suspect]
     Active Substance: TREPROSTINIL
     Indication: PRODUCT USED FOR UNKNOWN INDICATION
     Dosage: 12.5 NG, Q1MINUTE
     Route: 065
  9. TYVASO [Suspect]
     Active Substance: TREPROSTINIL
     Dosage: 3 BREATHS

REACTIONS (5)
  - Osteomyelitis [Unknown]
  - Headache [Not Recovered/Not Resolved]
  - Breakthrough pain [Not Recovered/Not Resolved]
  - Intentional dose omission [Recovered/Resolved]
  - Throat irritation [Not Recovered/Not Resolved]

NARRATIVE: CASE EVENT DATE: 201809
